FAERS Safety Report 26001424 (Version 1)
Quarter: 2025Q4

REPORT INFORMATION
  Report Type: Spontaneous
  Country: JP (occurrence: JP)
  Receive Date: 20251105
  Receipt Date: 20251105
  Transmission Date: 20260117
  Serious: Yes (Hospitalization, Other)
  Sender: PFIZER
  Company Number: JP-PFIZER INC-202500216323

PATIENT
  Age: 76 Year
  Sex: Male

DRUGS (4)
  1. ELRANATAMAB [Suspect]
     Active Substance: ELRANATAMAB
     Indication: Plasma cell myeloma
     Dosage: 12 MG, ON CYCLE 1 DAY 1 (C1D1)
  2. ELRANATAMAB [Suspect]
     Active Substance: ELRANATAMAB
     Dosage: 32 MG, ON C1D4
  3. ELRANATAMAB [Suspect]
     Active Substance: ELRANATAMAB
     Dosage: 76 MG, C1D8
  4. ELRANATAMAB [Suspect]
     Active Substance: ELRANATAMAB
     Dosage: 76 MG, WEEKLY THEREAFTER (FROM C1D15 ONWARD)

REACTIONS (3)
  - Hepatitis B reactivation [Recovered/Resolved]
  - Hypotension [Unknown]
  - Hypogammaglobulinaemia [Recovering/Resolving]
